FAERS Safety Report 16693581 (Version 3)
Quarter: 2019Q3

REPORT INFORMATION
  Report Type: Spontaneous
  Country: SE (occurrence: SE)
  Receive Date: 20190812
  Receipt Date: 20190904
  Transmission Date: 20191004
  Serious: Yes (Other)
  Sender: FDA-Public Use
  Company Number: SE-NAPPMUNDI-GBR-2019-0068700

PATIENT
  Age: 40 Year
  Sex: Male

DRUGS (4)
  1. DOLCONTIN [Suspect]
     Active Substance: MORPHINE
     Indication: PAIN
     Dosage: 600 MG, DAILY (STRENGHT 60 MG, 3+3+4)
     Route: 065
     Dates: end: 20190809
  2. LYRICA [Concomitant]
     Active Substance: PREGABALIN
     Indication: PAIN
  3. DOLCONTIN [Suspect]
     Active Substance: MORPHINE
     Dosage: 600 MG, DAILY (STRENGHT 100 MG 2+2+2)
     Route: 065
     Dates: start: 2007
  4. DOLCONTIN [Suspect]
     Active Substance: MORPHINE
     Dosage: 60 MG, UNK
     Route: 065

REACTIONS (4)
  - Therapeutic product effect decreased [Recovered/Resolved]
  - Asthenia [Unknown]
  - Insomnia [Unknown]
  - Cerebrovascular accident [Unknown]

NARRATIVE: CASE EVENT DATE: 2017
